FAERS Safety Report 8056970-6 (Version None)
Quarter: 2012Q1

REPORT INFORMATION
  Report Type: 
  Country: None (occurrence: None)
  Receive Date: 20120119
  Receipt Date: 20120111
  Transmission Date: 20120608
  Serious: Yes (Hospitalization)
  Sender: FDA-Public Use
  Company Number: FR-B.I. PHARMACEUTICALS,INC./RIDGEFIELD-2012-FF-00039FF

PATIENT
  Age: 81 Year
  Sex: Female

DRUGS (1)
  1. PRADAXA [Suspect]
     Indication: HIP ARTHROPLASTY
     Dosage: 150 MG
     Route: 058
     Dates: start: 20111201, end: 20111204

REACTIONS (3)
  - ACUTE CORONARY SYNDROME [None]
  - INCORRECT ROUTE OF DRUG ADMINISTRATION [None]
  - CHEST PAIN [None]
